FAERS Safety Report 18941031 (Version 1)
Quarter: 2021Q1

REPORT INFORMATION
  Report Type: Spontaneous
  Country: US (occurrence: US)
  Receive Date: 20210225
  Receipt Date: 20210225
  Transmission Date: 20210420
  Serious: No
  Sender: FDA-Public Use
  Company Number: US-TAKEDA-2021TUS010339

PATIENT
  Sex: Female

DRUGS (2)
  1. PENTASA [Suspect]
     Active Substance: MESALAMINE
     Indication: COLITIS ULCERATIVE
     Dosage: 500 MILLIGRAM, QID
     Route: 065
     Dates: start: 202003
  2. LINZESS [Concomitant]
     Active Substance: LINACLOTIDE
     Route: 065

REACTIONS (6)
  - Hair texture abnormal [Unknown]
  - Acne [Unknown]
  - Ear pain [Unknown]
  - Nasal congestion [Unknown]
  - Abdominal pain upper [Unknown]
  - Arthropathy [Recovered/Resolved]
